FAERS Safety Report 7162118-2 (Version None)
Quarter: 2010Q4

REPORT INFORMATION
  Report Type: 
  Country: None (occurrence: None)
  Receive Date: 20101215
  Receipt Date: 20090812
  Transmission Date: 20110411
  Serious: Yes (Other)
  Sender: FDA-Public Use
  Company Number: AR-PFIZER INC-2009240813

PATIENT
  Age: 30 Year

DRUGS (5)
  1. LYRICA [Suspect]
     Indication: NEURALGIA
     Dosage: 75 MG, 2X/DAY
     Route: 048
     Dates: start: 20090709, end: 20090711
  2. AMITRIPTYLINE [Concomitant]
     Route: 048
  3. CLONAZEPAM [Concomitant]
     Dosage: UNK
  4. BACLOFEN [Concomitant]
     Dosage: UNK
  5. AMIODARONE [Concomitant]
     Indication: ATRIAL FIBRILLATION
     Dosage: UNK

REACTIONS (8)
  - ABDOMINAL DISTENSION [None]
  - ABNORMAL FAECES [None]
  - AUTONOMIC NERVOUS SYSTEM IMBALANCE [None]
  - ERYTHEMA [None]
  - FLATULENCE [None]
  - HYPERTENSION [None]
  - MALAISE [None]
  - PILOERECTION [None]
